FAERS Safety Report 9916050 (Version 1)
Quarter: 2014Q1

REPORT INFORMATION
  Report Type: Spontaneous
  Country: US (occurrence: None)
  Receive Date: 20140220
  Receipt Date: 20140220
  Transmission Date: 20141002
  Serious: No
  Sender: FDA-Public Use
  Company Number: None

PATIENT
  Sex: Male

DRUGS (1)
  1. STIVARGA 40MG BAYER [Suspect]
     Indication: MALIGNANT ANORECTAL NEOPLASM
     Route: 048
     Dates: start: 20140129

REACTIONS (1)
  - Drug effect increased [None]
